FAERS Safety Report 7834227-3 (Version None)
Quarter: 2011Q4

REPORT INFORMATION
  Report Type: 
  Country: None (occurrence: None)
  Receive Date: 20111024
  Receipt Date: 20111019
  Transmission Date: 20120403
  Serious: Yes (Death, Other)
  Sender: FDA-Public Use
  Company Number: PHHY2011PL87043

PATIENT
  Age: 50 Year
  Sex: Female

DRUGS (3)
  1. LETROZOLE [Suspect]
     Route: 048
     Dates: start: 20070824
  2. DOXORUBICIN HCL [Concomitant]
     Dosage: UNK
     Dates: start: 20070212
  3. CYCLOPHOSPHAMIDE [Concomitant]
     Dosage: UNK
     Dates: start: 20070212

REACTIONS (2)
  - NEOPLASM MALIGNANT [None]
  - NEOPLASM PROGRESSION [None]
